FAERS Safety Report 7827465-7 (Version None)
Quarter: 2011Q4

REPORT INFORMATION
  Report Type: 
  Country: None (occurrence: None)
  Receive Date: 20111018
  Receipt Date: 20111004
  Transmission Date: 20120403
  Serious: Yes (Other)
  Sender: FDA-Public Use
  Company Number: DSU-2011-07384

PATIENT
  Sex: Male
  Weight: 56.6996 kg

DRUGS (3)
  1. ZETIA(EZETIMIBE)(-EZETIMIBE) ZETIA(EZETIMIBE)(-EZETIMIBE) [Concomitant]
  2. BENICAR [Suspect]
     Dosage: 40 MG (40 MG, QD) , PER ORAL
     Route: 048
     Dates: start: 20090101
  3. PLAVIX (CLOPIDOGREL) (CLOPIDOGREL) PLAVIX (CLOPIDOGREL) (CLOPIDOGREL) [Concomitant]

REACTIONS (2)
  - ALCOHOL USE [None]
  - RETINAL DEGENERATION [None]
